FAERS Safety Report 22910219 (Version 4)
Quarter: 2024Q3

REPORT INFORMATION
  Report Type: Spontaneous
  Country: US (occurrence: US)
  Receive Date: 20230906
  Receipt Date: 20240914
  Transmission Date: 20241017
  Serious: No
  Sender: SANOFI AVENTIS
  Company Number: US-SA-SAC20230904000322

PATIENT
  Age: 67 Year
  Sex: Female

DRUGS (1)
  1. DUPIXENT [Suspect]
     Active Substance: DUPILUMAB
     Indication: Asthma
     Dosage: 300 MG, QOW
     Route: 058

REACTIONS (14)
  - Muscle spasms [Unknown]
  - Contusion [Unknown]
  - Hyperkeratosis [Unknown]
  - Condition aggravated [Unknown]
  - Sleep disorder due to a general medical condition [Unknown]
  - Eye pain [Unknown]
  - Neck pain [Unknown]
  - Tinnitus [Unknown]
  - Blood uric acid increased [Unknown]
  - Pain in extremity [Unknown]
  - Myalgia [Unknown]
  - Dry eye [Unknown]
  - Arthralgia [Unknown]
  - Eye irritation [Unknown]

NARRATIVE: CASE EVENT DATE: 20240101
